FAERS Safety Report 9371653 (Version 2)
Quarter: 2013Q3

REPORT INFORMATION
  Report Type: Spontaneous
  Country: US (occurrence: US)
  Receive Date: 20130627
  Receipt Date: 20130917
  Transmission Date: 20140515
  Serious: No
  Sender: FDA-Public Use
  Company Number: US-PFIZER INC-2013190677

PATIENT
  Age: 56 Year
  Sex: Female
  Weight: 53.52 kg

DRUGS (10)
  1. CHANTIX [Suspect]
     Indication: SMOKING CESSATION THERAPY
     Dosage: 0.5 MG, 1X/DAY
     Route: 048
     Dates: start: 201306, end: 201306
  2. CHANTIX [Suspect]
     Dosage: 0.5 MG, 2X/DAY
     Route: 048
     Dates: start: 201306, end: 201306
  3. CHANTIX [Suspect]
     Dosage: 1 MG, 2X/DAY
     Route: 048
     Dates: start: 201306, end: 20130619
  4. SPIRIVA [Suspect]
     Indication: CHRONIC OBSTRUCTIVE PULMONARY DISEASE
     Dosage: UNK
  5. SPIRIVA [Suspect]
     Indication: EMPHYSEMA
  6. PROAIR [Concomitant]
     Indication: CHRONIC OBSTRUCTIVE PULMONARY DISEASE
     Dosage: UNK
  7. PROAIR [Concomitant]
     Indication: EMPHYSEMA
  8. PROPYLTHIOURACIL [Concomitant]
     Indication: HYPERTHYROIDISM
     Dosage: UNK
  9. CLONAZEPAM [Concomitant]
     Indication: ANXIETY
     Dosage: UNK
  10. PROZAC [Concomitant]
     Indication: DEPRESSION
     Dosage: UNK

REACTIONS (6)
  - Rash erythematous [Recovering/Resolving]
  - Burning sensation [Recovering/Resolving]
  - Urticaria [Recovering/Resolving]
  - Foreign body [Unknown]
  - Therapeutic response unexpected [Unknown]
  - Dependence [Unknown]
